FAERS Safety Report 9701186 (Version 1)
Quarter: 2013Q4

REPORT INFORMATION
  Report Type: Spontaneous
  Country: US (occurrence: None)
  Receive Date: 20131120
  Receipt Date: 20131120
  Transmission Date: 20140711
  Serious: No
  Sender: FDA-Public Use
  Company Number: None

PATIENT
  Age: 28 Year
  Sex: Female
  Weight: 126.55 kg

DRUGS (1)
  1. INCIVEK [Suspect]
     Indication: HEPATITIS C
     Dosage: 375 MG 2 TABLETS 3 TIMES A DAY PER MOUTH
     Route: 048

REACTIONS (3)
  - Nausea [None]
  - Pain [None]
  - Pyrexia [None]
